FAERS Safety Report 8365852-1 (Version None)
Quarter: 2012Q2

REPORT INFORMATION
  Report Type: 
  Country: None (occurrence: None)
  Receive Date: 20120515
  Receipt Date: 20120503
  Transmission Date: 20120825
  Serious: Yes (Other)
  Sender: FDA-Public Use
  Company Number: 1279598

PATIENT
  Age: 62 Year
  Sex: Female

DRUGS (3)
  1. CARBOPLATIN [Suspect]
     Indication: ADENOCARCINOMA
     Dosage: AREA UNDER CURVE 5-7.5
  2. PACLITAXEL [Suspect]
     Indication: ADENOCARCINOMA
     Dosage: 175 MG/M 2 MILLIGRAM(S)/ SQ. METER
     Route: 041
  3. BETAMETHASONE [Suspect]
     Indication: PRODUCT USED FOR UNKNOWN INDICATION
     Dosage: 16 MG MILLIGRAM(S), INTRAVENOUS
     Route: 042

REACTIONS (9)
  - DEPRESSION SUICIDAL [None]
  - FLUSHING [None]
  - ENCEPHALOPATHY [None]
  - OVARIAN CANCER RECURRENT [None]
  - NAUSEA [None]
  - FATIGUE [None]
  - REFUSAL OF TREATMENT BY PATIENT [None]
  - VOMITING [None]
  - PSYCHOMOTOR RETARDATION [None]
